FAERS Safety Report 7133270-X (Version None)
Quarter: 2010Q4

REPORT INFORMATION
  Report Type: 
  Country: None (occurrence: None)
  Receive Date: 20101117
  Receipt Date: 20101102
  Transmission Date: 20110411
  Serious: Yes (Death)
  Sender: FDA-Public Use
  Company Number: AUR-APL-2010-02768

PATIENT
  Age: 50 Year

DRUGS (2)
  1. HYDROCHLOROTHIAZIDE [Suspect]
     Indication: ILL-DEFINED DISORDER
  2. VENLAFAXINE [Suspect]
     Indication: ILL-DEFINED DISORDER

REACTIONS (1)
  - DRUG TOXICITY [None]
